FAERS Safety Report 6057490-0 (Version None)
Quarter: 2009Q1

REPORT INFORMATION
  Report Type: 
  Country: None (occurrence: None)
  Receive Date: 20090129
  Receipt Date: 20090119
  Transmission Date: 20090719
  Serious: Yes (Other)
  Sender: FDA-Public Use
  Company Number: DE-ALLERGAN-0814655US

PATIENT
  Sex: Male

DRUGS (5)
  1. RESTASIS [Suspect]
     Indication: EYE INFLAMMATION
     Dosage: UNK, UNK
     Route: 047
     Dates: start: 20040101
  2. RESTASIS [Suspect]
     Dosage: UNK, QD
     Dates: start: 20081201
  3. CELLUFRESH [Concomitant]
     Indication: DRUG USE FOR UNKNOWN INDICATION
  4. OPTIVE [Concomitant]
     Indication: DRUG USE FOR UNKNOWN INDICATION
  5. CELLUVISC 1% AUGENTROPFEN [Concomitant]
     Indication: DRY EYE

REACTIONS (2)
  - CORNEAL INFILTRATES [None]
  - VISION BLURRED [None]
